FAERS Safety Report 12059120 (Version 1)
Quarter: 2016Q1

REPORT INFORMATION
  Report Type: Spontaneous
  Country: CH (occurrence: CH)
  Receive Date: 20160210
  Receipt Date: 20160210
  Transmission Date: 20160526
  Serious: Yes (Death)
  Sender: FDA-Public Use
  Company Number: PHHY2016CH017115

PATIENT
  Age: 68 Year
  Sex: Male

DRUGS (4)
  1. PREDNISONE. [Concomitant]
     Active Substance: PREDNISONE
     Indication: GOUT
     Route: 065
  2. EVEROLIMUS [Suspect]
     Active Substance: EVEROLIMUS
     Indication: RENAL CELL CARCINOMA
     Dosage: 10 MG, QD
     Route: 065
     Dates: start: 20140314
  3. SUNITINIB [Suspect]
     Active Substance: SUNITINIB
     Indication: RENAL CELL CARCINOMA
     Dosage: 37.5 MG, UNK
     Route: 065
  4. SORAFENIB [Suspect]
     Active Substance: SORAFENIB
     Indication: RENAL CELL CARCINOMA
     Dosage: 200 MG, BID
     Route: 065

REACTIONS (3)
  - Death [Fatal]
  - Pain [Unknown]
  - Malignant neoplasm progression [Unknown]

NARRATIVE: CASE EVENT DATE: 20151211
